FAERS Safety Report 5393042-3 (Version None)
Quarter: 2007Q3

REPORT INFORMATION
  Report Type: 
  Country: None (occurrence: None)
  Receive Date: 20070718
  Receipt Date: 20070704
  Transmission Date: 20080115
  Serious: Yes (Hospitalization)
  Sender: FDA-Public Use
  Company Number: DSJ-2007-02920

PATIENT
  Age: 65 Year
  Sex: Female

DRUGS (6)
  1. OLMESARTAN MEDOXOMIL [Suspect]
     Indication: HYPERTENSION
     Dosage: 20 MG, PER ORAL
     Route: 048
     Dates: start: 20060401
  2. HERBESSER R (DILTIAZEM HYDROCHLORIDE) (DILTIAZEM HYDROCHLORIDE) [Concomitant]
  3. LIPITOR [Concomitant]
  4. NIKORANMART (NICORANDIL) [Concomitant]
  5. JUVELA N SOFT (TOCOPHERYL NICOTINATE) [Concomitant]
  6. DEPAS (ETIZOLAM) [Concomitant]

REACTIONS (2)
  - HYPOGLYCAEMIA [None]
  - INSULINOMA [None]
